FAERS Safety Report 11333673 (Version 2)
Quarter: 2015Q3

REPORT INFORMATION
  Report Type: Spontaneous
  Country: US (occurrence: US)
  Receive Date: 20150803
  Receipt Date: 20150904
  Transmission Date: 20151125
  Serious: No
  Sender: FDA-Public Use
  Company Number: US-009507513-1507USA008219

PATIENT
  Sex: Female

DRUGS (2)
  1. HYDROXYPROGESTERONE CAPROATE. [Concomitant]
     Active Substance: HYDROXYPROGESTERONE CAPROATE
  2. BETAMETHASONE. [Suspect]
     Active Substance: BETAMETHASONE
     Route: 048

REACTIONS (1)
  - Exposure during pregnancy [Recovered/Resolved]
